FAERS Safety Report 18407275 (Version 2)
Quarter: 2020Q4

REPORT INFORMATION
  Report Type: Spontaneous
  Country: JP (occurrence: JP)
  Receive Date: 20201021
  Receipt Date: 20201204
  Transmission Date: 20210114
  Serious: Yes (Other)
  Sender: FDA-Public Use
  Company Number: JP-ROCHE-2698293

PATIENT
  Age: 52 Year
  Sex: Female
  Weight: 60 kg

DRUGS (10)
  1. TECENTRIQ [Suspect]
     Active Substance: ATEZOLIZUMAB
     Indication: NEUROENDOCRINE TUMOUR
     Route: 041
     Dates: start: 20200908
  2. TECENTRIQ [Suspect]
     Active Substance: ATEZOLIZUMAB
     Route: 041
     Dates: start: 20201014
  3. ABRAXANE [Concomitant]
     Active Substance: PACLITAXEL
     Route: 041
     Dates: start: 20201014
  4. DIHYDROCODEINE PHOSPHATE [Concomitant]
     Active Substance: DIHYDROCODEINE PHOSPHATE
     Route: 065
     Dates: start: 20200825
  5. ETIZOLAM [Concomitant]
     Active Substance: ETIZOLAM
     Route: 065
     Dates: start: 20200924
  6. CARBOPLATIN. [Concomitant]
     Active Substance: CARBOPLATIN
     Indication: NON-SMALL CELL LUNG CANCER
     Route: 041
     Dates: start: 20200908, end: 20200908
  7. BILANOA [Concomitant]
     Active Substance: BILASTINE
     Route: 065
     Dates: start: 20200206
  8. RESPLEN [Concomitant]
     Active Substance: EPRAZINONE
     Route: 065
     Dates: start: 20200807
  9. CARBOPLATIN. [Concomitant]
     Active Substance: CARBOPLATIN
     Route: 041
     Dates: start: 20201014
  10. ABRAXANE [Concomitant]
     Active Substance: PACLITAXEL
     Indication: NEUROENDOCRINE TUMOUR
     Route: 041
     Dates: start: 20200908, end: 20200908

REACTIONS (1)
  - Pneumothorax spontaneous [Not Recovered/Not Resolved]

NARRATIVE: CASE EVENT DATE: 20201005
